FAERS Safety Report 11327581 (Version 2)
Quarter: 2015Q3

REPORT INFORMATION
  Report Type: Spontaneous
  Country: ES (occurrence: ES)
  Receive Date: 20150731
  Receipt Date: 20150803
  Transmission Date: 20151125
  Serious: Yes (Other)
  Sender: FDA-Public Use
  Company Number: ES-UCBSA-2015023575

PATIENT
  Age: 26 Year
  Sex: Female

DRUGS (5)
  1. KEPPRA [Suspect]
     Active Substance: LEVETIRACETAM
     Indication: EPILEPSY
     Dosage: 500 MG, 2X/DAY (BID)
     Route: 042
     Dates: start: 20140208, end: 20140212
  2. LACOSAMIDE [Concomitant]
     Active Substance: LACOSAMIDE
     Indication: EPILEPSY
     Dosage: 200 MG, 2X/DAY (BID)
  3. KEPPRA [Suspect]
     Active Substance: LEVETIRACETAM
     Dosage: 1500 MG, 2X/DAY (BID)
     Dates: start: 20140215, end: 20140215
  4. KEPPRA [Suspect]
     Active Substance: LEVETIRACETAM
     Indication: EPILEPSY
     Dosage: 500 MG, 2X/DAY (BID)
     Route: 048
     Dates: start: 20140212, end: 20140215
  5. GABAPENTIN. [Concomitant]
     Active Substance: GABAPENTIN
     Indication: EPILEPSY
     Dosage: 400 MG, 2X/DAY (BID)
     Route: 048

REACTIONS (3)
  - Hypertransaminasaemia [Recovered/Resolved]
  - Hepatic encephalopathy [Recovered/Resolved]
  - Liver disorder [Unknown]

NARRATIVE: CASE EVENT DATE: 201402
